FAERS Safety Report 10063429 (Version 2)
Quarter: 2014Q2

REPORT INFORMATION
  Report Type: Spontaneous
  Country: IT (occurrence: IT)
  Receive Date: 20140407
  Receipt Date: 20140407
  Transmission Date: 20141212
  Serious: Yes (Other)
  Sender: FDA-Public Use
  Company Number: IT-WATSON-2014-06368

PATIENT
  Age: 67 Year
  Sex: Male

DRUGS (4)
  1. PREGABALIN (UNKNOWN) [Suspect]
     Indication: PRODUCT USED FOR UNKNOWN INDICATION
     Dosage: 225 MG, DAILY (75 MG+150 MG)
     Route: 065
  2. PREGABALIN (UNKNOWN) [Suspect]
     Dosage: 150 MG, DAILY
     Route: 065
  3. PREGABALIN (UNKNOWN) [Suspect]
     Dosage: 75 MG, DAILY
     Route: 065
  4. CARVEDILOL [Concomitant]
     Indication: PRODUCT USED FOR UNKNOWN INDICATION
     Dosage: 12.5 MG, DAILY
     Route: 065

REACTIONS (2)
  - Atrioventricular block [Recovered/Resolved]
  - Electrocardiogram PR prolongation [Recovered/Resolved]
